FAERS Safety Report 13036295 (Version 2)
Quarter: 2017Q2

REPORT INFORMATION
  Report Type: Spontaneous
  Country: SK (occurrence: SK)
  Receive Date: 20161216
  Receipt Date: 20170403
  Transmission Date: 20170830
  Serious: Yes (Death, Life-Threatening, Hospitalization)
  Sender: FDA-Public Use
  Company Number: SK-JNJFOC-20161213883

PATIENT
  Age: 74 Year
  Sex: Female

DRUGS (8)
  1. KALDYUM [Concomitant]
     Active Substance: POTASSIUM CHLORIDE
     Route: 065
  2. PANTOPRAZOLE SODIUM. [Concomitant]
     Active Substance: PANTOPRAZOLE SODIUM
     Route: 065
  3. DICYNONE [Concomitant]
     Active Substance: ETHAMSYLATE
     Route: 065
  4. EUPHYLLIN CR N [Concomitant]
     Route: 065
  5. XARELTO [Suspect]
     Active Substance: RIVAROXABAN
     Indication: CEREBROVASCULAR ACCIDENT
     Route: 048
  6. AMBROBENE [Concomitant]
     Active Substance: AMBROXOL HYDROCHLORIDE
     Route: 065
  7. VIGANTOL [Concomitant]
     Active Substance: CHOLECALCIFEROL
     Route: 065
  8. TIMONIL [Concomitant]
     Active Substance: CARBAMAZEPINE
     Route: 065

REACTIONS (1)
  - Intestinal haemorrhage [Recovered/Resolved]

NARRATIVE: CASE EVENT DATE: 20161106
